FAERS Safety Report 17376012 (Version 1)
Quarter: 2020Q1

REPORT INFORMATION
  Report Type: Spontaneous
  Country: US (occurrence: US)
  Receive Date: 20200206
  Receipt Date: 20200206
  Transmission Date: 20200409
  Serious: Yes (Other)
  Sender: FDA-Public Use
  Company Number: US-ELI_LILLY_AND_COMPANY-US202001013647

PATIENT
  Age: 49 Year
  Sex: Male

DRUGS (5)
  1. HUMULIN R U-500 [Suspect]
     Active Substance: INSULIN HUMAN
     Dosage: 110 U, EACH EVENING
     Route: 065
     Dates: start: 201910
  2. HUMULIN R U-500 [Suspect]
     Active Substance: INSULIN HUMAN
     Indication: TYPE 2 DIABETES MELLITUS
     Dosage: 125 U, EACH MORNING
     Route: 065
     Dates: start: 201910
  3. TRULICITY [Suspect]
     Active Substance: DULAGLUTIDE
     Indication: TYPE 2 DIABETES MELLITUS
     Dosage: 0.75 MG, WEEKLY (1/W)
     Route: 065
  4. HUMULIN R [Suspect]
     Active Substance: INSULIN HUMAN
     Indication: TYPE 2 DIABETES MELLITUS
     Dosage: 125 U, EACH MORNING
     Route: 065
     Dates: start: 201910
  5. HUMULIN R [Suspect]
     Active Substance: INSULIN HUMAN
     Dosage: 110 U, EACH EVENING
     Route: 065
     Dates: start: 201910

REACTIONS (3)
  - Wrist fracture [Recovering/Resolving]
  - Foot fracture [Recovering/Resolving]
  - Road traffic accident [Recovering/Resolving]

NARRATIVE: CASE EVENT DATE: 20200104
